FAERS Safety Report 8459520-5 (Version None)
Quarter: 2012Q2

REPORT INFORMATION
  Report Type: 
  Country: None (occurrence: None)
  Receive Date: 20120622
  Receipt Date: 20120614
  Transmission Date: 20120825
  Serious: Yes (Other)
  Sender: FDA-Public Use
  Company Number: DE-JNJFOC-20120607019

PATIENT
  Age: 59 Year
  Sex: Female
  Weight: 63.1 kg

DRUGS (4)
  1. PREDNISONE TAB [Concomitant]
     Indication: ANKYLOSING SPONDYLITIS
     Route: 065
     Dates: start: 20010101
  2. VOLTAREN [Concomitant]
     Indication: ANKYLOSING SPONDYLITIS
     Route: 065
  3. REMICADE [Suspect]
     Indication: ANKYLOSING SPONDYLITIS
     Dosage: ONCE EVERY 8 -10 WEEKS
     Route: 042
     Dates: start: 20060511
  4. METHOTREXATE [Concomitant]
     Indication: ANKYLOSING SPONDYLITIS
     Route: 065
     Dates: start: 20060511

REACTIONS (2)
  - BASAL CELL CARCINOMA [None]
  - SKIN PAPILLOMA [None]
